FAERS Safety Report 6531668-1 (Version None)
Quarter: 2010Q1

REPORT INFORMATION
  Report Type: 
  Country: None (occurrence: None)
  Receive Date: 20100107
  Receipt Date: 20100107
  Transmission Date: 20100710
  Serious: Yes (Other)
  Sender: FDA-Public Use
  Company Number: None

PATIENT
  Sex: Female
  Weight: 63.6 kg

DRUGS (4)
  1. OMEPRAZOLE [Suspect]
     Indication: GASTROOESOPHAGEAL REFLUX DISEASE
     Dosage: 20 MG BID ORAL, APPROXIMATELY 4 WEEKS TOTAL
     Route: 048
  2. DYAZIDE [Concomitant]
  3. SYNTHROID [Concomitant]
  4. VITAMIN TAB [Concomitant]

REACTIONS (8)
  - ABDOMINAL PAIN [None]
  - DIZZINESS [None]
  - DYSPEPSIA [None]
  - ERUCTATION [None]
  - FATIGUE [None]
  - FLATULENCE [None]
  - NAUSEA [None]
  - TONGUE ULCERATION [None]
